FAERS Safety Report 8865572 (Version 1)
Quarter: 2012Q4

REPORT INFORMATION
  Report Type: 
  Country: US (occurrence: US)
  Receive Date: 20121024
  Receipt Date: 20121024
  Transmission Date: 20130627
  Serious: No
  Sender: FDA-Public Use
  Company Number: US-AMGEN-USASP2012003677

PATIENT
  Sex: Female

DRUGS (12)
  1. ENBREL [Suspect]
     Indication: PRODUCT USED FOR UNKNOWN INDICATION
     Dosage: 50 mg, qwk
     Route: 058
  2. METHOTREXATE [Concomitant]
     Dosage: 2.5 mg, UNK
  3. PRESTIGESIC [Concomitant]
  4. WELLBUTRIN [Concomitant]
     Dosage: 75 mg, UNK
  5. FOLIC ACID [Concomitant]
     Dosage: 1 mg, UNK
  6. SINGULAIR [Concomitant]
     Dosage: 4 mg, UNK
  7. ALEVE [Concomitant]
     Dosage: 220 mg, UNK
  8. CALCIUM +D                         /00188401/ [Concomitant]
  9. ZOCOR [Concomitant]
     Dosage: 5 mg, UNK
  10. PULMICORT [Concomitant]
     Dosage: 180 UNK, UNK
  11. PREDNISONE [Concomitant]
     Dosage: 1 mg, UNK
  12. ALBUTEROL                          /00139501/ [Concomitant]

REACTIONS (4)
  - Injection site reaction [Unknown]
  - Injection site erythema [Unknown]
  - Nasopharyngitis [Recovered/Resolved]
  - Bronchitis [Recovered/Resolved]
